FAERS Safety Report 20102697 (Version 1)
Quarter: 2021Q4

REPORT INFORMATION
  Report Type: Spontaneous
  Country: CA (occurrence: CA)
  Receive Date: 20211123
  Receipt Date: 20211123
  Transmission Date: 20220303
  Serious: Yes (Other)
  Sender: FDA-Public Use
  Company Number: CA-PFIZER INC-2020361030

PATIENT
  Age: 60 Year
  Sex: Female

DRUGS (10)
  1. XELJANZ [Interacting]
     Active Substance: TOFACITINIB CITRATE
     Indication: Psoriatic arthropathy
     Dosage: 5 MG, 2X/DAY
     Route: 048
     Dates: start: 20200724, end: 2021
  2. XELJANZ [Interacting]
     Active Substance: TOFACITINIB CITRATE
     Dosage: 5 MG, 1X/DAY
     Route: 048
     Dates: start: 20211103, end: 2021
  3. XELJANZ [Interacting]
     Active Substance: TOFACITINIB CITRATE
     Dosage: 5 MG, 1X/DAY
     Route: 048
     Dates: start: 2021
  4. METHOTREXATE [Concomitant]
     Active Substance: METHOTREXATE
     Indication: Psoriatic arthropathy
     Dosage: 20 MG, WEEKLY
     Route: 058
     Dates: start: 2009
  5. METOPROLOL [Concomitant]
     Active Substance: METOPROLOL
     Dosage: UNK
     Route: 065
  6. FOLIC ACID [Concomitant]
     Active Substance: FOLIC ACID
     Dosage: UNK
     Route: 065
  7. ASPIRIN [Concomitant]
     Active Substance: ASPIRIN
     Dosage: LOW DOSE
     Route: 065
  8. PANTOPRAZOLE SODIUM [Concomitant]
     Active Substance: PANTOPRAZOLE SODIUM
     Dosage: UNK
     Route: 065
  9. TYLENOL WITH CODEINE [Concomitant]
     Active Substance: ACETAMINOPHEN\CODEINE PHOSPHATE
     Dosage: AS NEEDED
     Route: 065
  10. BUDESONIDE [Concomitant]
     Active Substance: BUDESONIDE
     Dosage: UNK
     Route: 065

REACTIONS (15)
  - Thyroid mass [Unknown]
  - Arthropathy [Unknown]
  - Drug ineffective [Unknown]
  - Drug interaction [Unknown]
  - Arthropathy [Not Recovered/Not Resolved]
  - Condition aggravated [Unknown]
  - Crying [Unknown]
  - Emotional disorder [Unknown]
  - Gait disturbance [Unknown]
  - Malaise [Unknown]
  - Movement disorder [Unknown]
  - Psoriasis [Not Recovered/Not Resolved]
  - Skin disorder [Not Recovered/Not Resolved]
  - Candida infection [Unknown]
  - Pain [Unknown]

NARRATIVE: CASE EVENT DATE: 20200101
